FAERS Safety Report 8162183-X (Version None)
Quarter: 2012Q1

REPORT INFORMATION
  Report Type: 
  Country: None (occurrence: None)
  Receive Date: 20120224
  Receipt Date: 20110930
  Transmission Date: 20120608
  Serious: No
  Sender: FDA-Public Use
  Company Number: US-BRISTOL-MYERS SQUIBB COMPANY-16092793

PATIENT
  Age: 52 Year
  Sex: Female

DRUGS (3)
  1. METFORMIN HCL [Suspect]
  2. LANTUS [Suspect]
     Indication: TYPE 2 DIABETES MELLITUS
     Dosage: 1DF:70 UNITS.
     Route: 058
     Dates: start: 20110719
  3. PHENERGAN [Suspect]
     Dates: start: 20110831

REACTIONS (6)
  - TREMOR [None]
  - SOMNOLENCE [None]
  - FATIGUE [None]
  - INJECTION SITE PAIN [None]
  - DIZZINESS [None]
  - FEELING ABNORMAL [None]
